FAERS Safety Report 18499878 (Version 2)
Quarter: 2023Q1

REPORT INFORMATION
  Report Type: Report from Study
  Country: JP (occurrence: JP)
  Receive Date: 20201112
  Receipt Date: 20230316
  Transmission Date: 20230417
  Serious: Yes (Hospitalization)
  Sender: FDA-Public Use
  Company Number: JP-ABBVIE-18S-087-2494336-00

PATIENT
  Age: 71 Year
  Sex: Female

DRUGS (8)
  1. CARBIDOPA\LEVODOPA [Suspect]
     Active Substance: CARBIDOPA\LEVODOPA
     Indication: Parkinson^s disease
     Dosage: J-TUBE
     Route: 050
  2. CARBIDOPA\LEVODOPA [Suspect]
     Active Substance: CARBIDOPA\LEVODOPA
     Dosage: MD: 7 ML?CD: 3.3 ML/HR ? 16 HRS?ED: 3.5 ML/UNIT ? 2 TIMES
     Route: 050
     Dates: start: 20180926
  3. CARBIDOPA\LEVODOPA [Suspect]
     Active Substance: CARBIDOPA\LEVODOPA
     Dosage: MD: 7 ML?CD: 3.3 ML/HR ? 16 HRS?ED: 3.5 ML/UNIT ? 2 TIMES
     Route: 050
     Dates: start: 20180731, end: 20180923
  4. ROTIGOTINE [Concomitant]
     Active Substance: ROTIGOTINE
     Indication: Parkinson^s disease
     Route: 062
  5. FLUNITRAZEPAM [Concomitant]
     Active Substance: FLUNITRAZEPAM
     Indication: Product used for unknown indication
     Route: 048
  6. TRIAZOLAM [Concomitant]
     Active Substance: TRIAZOLAM
     Indication: Product used for unknown indication
     Route: 048
  7. CARBIDOPA HYDRATE AND LEVODOPA [Concomitant]
     Indication: Parkinson^s disease
     Route: 048
     Dates: start: 20180916, end: 20180922
  8. CARBIDOPA HYDRATE AND LEVODOPA [Concomitant]
     Indication: Parkinson^s disease
     Route: 048
     Dates: start: 20180923, end: 20180926

REACTIONS (6)
  - Femur fracture [Recovering/Resolving]
  - On and off phenomenon [Unknown]
  - Stoma site extravasation [Unknown]
  - Intentional product misuse [Unknown]
  - Device dislocation [Unknown]
  - Fall [Unknown]

NARRATIVE: CASE EVENT DATE: 20180915
